FAERS Safety Report 21070627 (Version 2)
Quarter: 2022Q3

REPORT INFORMATION
  Report Type: Spontaneous
  Country: FI (occurrence: FI)
  Receive Date: 20220712
  Receipt Date: 20220818
  Transmission Date: 20221026
  Serious: Yes (Life-Threatening, Other)
  Sender: FDA-Public Use
  Company Number: FI-SA-2016SA045448

PATIENT
  Sex: Male

DRUGS (11)
  1. TOUJEO [Suspect]
     Active Substance: INSULIN GLARGINE
     Indication: Type 1 diabetes mellitus
     Dosage: 21 DF,QD
  2. TOUJEO [Suspect]
     Active Substance: INSULIN GLARGINE
     Dosage: 19 DF,QD
  3. TOUJEO [Suspect]
     Active Substance: INSULIN GLARGINE
     Dosage: 15 DF,QD
     Dates: start: 20160106
  4. TOUJEO [Suspect]
     Active Substance: INSULIN GLARGINE
     Dosage: 22 DF,QD
  5. TOUJEO [Suspect]
     Active Substance: INSULIN GLARGINE
     Dosage: 24 IU, QD
  6. TOUJEO [Suspect]
     Active Substance: INSULIN GLARGINE
     Dosage: 22 DF QD
  7. LIOTHYRONINE [Concomitant]
     Active Substance: LIOTHYRONINE
     Indication: Hypothyroidism
     Dosage: UNK UNK, QD
  8. HUMALOG [Concomitant]
     Active Substance: INSULIN LISPRO
     Indication: Type 1 diabetes mellitus
     Dosage: UNK
  9. MICARDIS [Concomitant]
     Active Substance: TELMISARTAN
     Indication: Hypertension
     Dosage: UNK UNK, QD
  10. LEVOTHYROXINE [Concomitant]
     Active Substance: LEVOTHYROXINE
     Indication: Hypothyroidism
     Dosage: UNK, QD
  11. NOVORAPID [Concomitant]
     Active Substance: INSULIN ASPART
     Indication: Blood pressure measurement
     Dosage: UNK UNK, QD

REACTIONS (13)
  - Loss of consciousness [Unknown]
  - Hypoglycaemia [Unknown]
  - Therapeutic response increased [Unknown]
  - Loss of consciousness [Recovered/Resolved]
  - Abnormal behaviour [Recovered/Resolved]
  - Blood glucose fluctuation [Not Recovered/Not Resolved]
  - Intentional product misuse [Unknown]
  - Blood glucose increased [Unknown]
  - Blood glucose decreased [Not Recovered/Not Resolved]
  - Therapeutic response decreased [Unknown]
  - Blood glucose decreased [Recovered/Resolved]
  - Product use issue [Unknown]
  - Drug ineffective [Unknown]

NARRATIVE: CASE EVENT DATE: 20160101
